FAERS Safety Report 25182115 (Version 4)
Quarter: 2025Q3

REPORT INFORMATION
  Report Type: Report from Study
  Country: US (occurrence: US)
  Receive Date: 20250410
  Receipt Date: 20250925
  Transmission Date: 20251021
  Serious: Yes (Hospitalization)
  Sender: SUNOVION
  Company Number: US-SUMITOMO PHARMA SWITZERLAND GMBH-2025SPA003141

PATIENT
  Age: 68 Year
  Sex: Male

DRUGS (1)
  1. ORGOVYX [Suspect]
     Active Substance: RELUGOLIX
     Indication: Prostate cancer
     Dosage: 120 MG, QD
     Route: 048
     Dates: start: 20250314

REACTIONS (10)
  - Nausea [Unknown]
  - Anosmia [Unknown]
  - Ageusia [Unknown]
  - Blood pressure abnormal [Unknown]
  - Weight decreased [Unknown]
  - Decreased appetite [Unknown]
  - Sluggishness [Unknown]
  - Abdominal discomfort [Unknown]
  - Dizziness [Unknown]
  - Incorrect dose administered [Recovered/Resolved]
